FAERS Safety Report 5176496-7 (Version None)
Quarter: 2006Q4

REPORT INFORMATION
  Report Type: 
  Country: None (occurrence: None)
  Receive Date: 20061215
  Receipt Date: 20060712
  Transmission Date: 20070319
  Serious: Yes (Disabling)
  Sender: FDA-Public Use
  Company Number: US-ROCHE-455543

PATIENT
  Age: 64 Year
  Sex: Female
  Weight: 86.2 kg

DRUGS (5)
  1. BONIVA [Suspect]
     Indication: OSTEOPOROSIS
     Route: 048
     Dates: start: 20060115, end: 20060504
  2. LISINOPRIL [Concomitant]
     Dosage: START DATE WAS REPORTED TO BE YEARS AGO.
     Route: 048
  3. NEXIUM [Concomitant]
     Dosage: START DATE WAS REPORTED TO BE YEARS AGO.
     Route: 048
  4. DITROPAN XL [Concomitant]
     Indication: URINARY INCONTINENCE
     Dosage: STRAT DATE REPORTED TO BE YEARS AGO.
     Route: 048
  5. PROZAC [Concomitant]
     Indication: DEPRESSION
     Dosage: START DATE REPORTED TO BE YEARS AGO.
     Route: 048

REACTIONS (8)
  - ABDOMINAL PAIN UPPER [None]
  - BONE DISORDER [None]
  - BONE GRAFT [None]
  - ILL-DEFINED DISORDER [None]
  - IMPAIRED HEALING [None]
  - JAW OPERATION [None]
  - OSTEONECROSIS [None]
  - STOMATITIS NECROTISING [None]
